FAERS Safety Report 12682154 (Version 2)
Quarter: 2016Q4

REPORT INFORMATION
  Report Type: Spontaneous
  Country: US (occurrence: US)
  Receive Date: 20160824
  Receipt Date: 20161010
  Transmission Date: 20170207
  Serious: Yes (Other)
  Sender: FDA-Public Use
  Company Number: US-BAYER-2016-159892

PATIENT
  Age: 51 Year
  Sex: Female

DRUGS (1)
  1. MIRENA [Suspect]
     Active Substance: LEVONORGESTREL
     Indication: MENORRHAGIA
     Dosage: 20 MCG/24HR, CONT
     Route: 015
     Dates: start: 2016

REACTIONS (12)
  - Device dislocation [Not Recovered/Not Resolved]
  - Fatigue [None]
  - Headache [None]
  - Vaginal haemorrhage [None]
  - Dizziness [None]
  - Breast pain [None]
  - Pain in extremity [None]
  - Weight increased [None]
  - Breast swelling [None]
  - Mood swings [None]
  - Joint swelling [None]
  - Tinnitus [None]

NARRATIVE: CASE EVENT DATE: 2016
